FAERS Safety Report 20109993 (Version 1)
Quarter: 2021Q4

REPORT INFORMATION
  Report Type: Spontaneous
  Country: None (occurrence: US)
  Receive Date: 20211124
  Receipt Date: 20211124
  Transmission Date: 20220303
  Serious: No
  Sender: FDA-Public Use
  Company Number: US-Breckenridge Pharmaceutical, Inc.-2122292

PATIENT
  Age: 66 Year
  Sex: Female

DRUGS (2)
  1. DULOXETINE [Suspect]
     Active Substance: DULOXETINE
     Indication: Neuropathy peripheral
     Route: 048
  2. Covid vaccine from Pfizer [Concomitant]

REACTIONS (3)
  - Throat irritation [Unknown]
  - Cough [Unknown]
  - Chest discomfort [Unknown]
